FAERS Safety Report 13442288 (Version 1)
Quarter: 2017Q2

REPORT INFORMATION
  Report Type: Spontaneous
  Country: US (occurrence: US)
  Receive Date: 20170413
  Receipt Date: 20170413
  Transmission Date: 20170830
  Serious: Yes (Other)
  Sender: FDA-Public Use
  Company Number: None

PATIENT
  Age: 63 Year
  Sex: Female
  Weight: 64.8 kg

DRUGS (7)
  1. SYNTHROID [Suspect]
     Active Substance: LEVOTHYROXINE SODIUM
     Indication: HYPOTHYROIDISM
     Dosage: ?          QUANTITY:2 TABLET(S);?
     Route: 048
     Dates: start: 20160811, end: 20170411
  2. RANITIDINE. [Concomitant]
     Active Substance: RANITIDINE
  3. CLARITIN [Concomitant]
     Active Substance: LORATADINE
  4. ZAFIRLUKAST. [Concomitant]
     Active Substance: ZAFIRLUKAST
  5. EPIPEN [Concomitant]
     Active Substance: EPINEPHRINE
  6. BENADRYL [Concomitant]
     Active Substance: DIPHENHYDRAMINE HYDROCHLORIDE
  7. TYLENOL [Concomitant]
     Active Substance: ACETAMINOPHEN

REACTIONS (3)
  - Sedation [None]
  - Feeling abnormal [None]
  - Product quality issue [None]

NARRATIVE: CASE EVENT DATE: 20170413
